FAERS Safety Report 25116423 (Version 3)
Quarter: 2025Q2

REPORT INFORMATION
  Report Type: Spontaneous
  Country: PT (occurrence: PT)
  Receive Date: 20250325
  Receipt Date: 20250409
  Transmission Date: 20250716
  Serious: Yes (Other)
  Sender: JOHNSON AND JOHNSON
  Company Number: None

PATIENT
  Age: 27 Year
  Sex: Male
  Weight: 86.7 kg

DRUGS (2)
  1. RILPIVIRINE [Suspect]
     Active Substance: RILPIVIRINE
     Indication: HIV infection
     Dosage: 900 MG, Q2M
     Route: 030
     Dates: start: 20240925
  2. VOCABRIA [Suspect]
     Active Substance: CABOTEGRAVIR SODIUM
     Indication: HIV infection
     Dosage: IM
     Route: 030
     Dates: start: 20240925

REACTIONS (2)
  - Major depression [Not Recovered/Not Resolved]
  - Negative thoughts [Not Recovered/Not Resolved]

NARRATIVE: CASE EVENT DATE: 20240925
